FAERS Safety Report 20724146 (Version 1)
Quarter: 2022Q2

REPORT INFORMATION
  Report Type: Spontaneous
  Country: US (occurrence: US)
  Receive Date: 20220419
  Receipt Date: 20220419
  Transmission Date: 20220721
  Serious: Yes (Other)
  Sender: FDA-Public Use
  Company Number: US-PBT-004504

PATIENT
  Age: 18 Year
  Sex: Female

DRUGS (6)
  1. TACROLIMUS [Interacting]
     Active Substance: TACROLIMUS
     Indication: Prophylaxis against transplant rejection
     Route: 065
  2. IVACAFTOR [Interacting]
     Active Substance: IVACAFTOR
     Indication: Oedema
     Route: 065
     Dates: start: 201912
  3. TEZACAFTOR [Interacting]
     Active Substance: TEZACAFTOR
     Indication: Oedema
     Route: 065
     Dates: start: 201912
  4. TACROLIMUS [Interacting]
     Active Substance: TACROLIMUS
     Indication: Prophylaxis against transplant rejection
     Route: 065
  5. IVACAFTOR [Interacting]
     Active Substance: IVACAFTOR
     Indication: Oedema
     Route: 065
     Dates: start: 201912
  6. TEZACAFTOR [Interacting]
     Active Substance: TEZACAFTOR
     Indication: Oedema
     Route: 065
     Dates: start: 201912

REACTIONS (8)
  - Disease recurrence [Unknown]
  - Ascites [Unknown]
  - Alloimmune hepatitis [Unknown]
  - Drug interaction [Unknown]
  - Oedema [Unknown]
  - Hypertransaminasaemia [Unknown]
  - Liver function test increased [Unknown]
  - Blood bilirubin increased [Unknown]
